FAERS Safety Report 18035127 (Version 1)
Quarter: 2020Q3

REPORT INFORMATION
  Report Type: Spontaneous
  Country: US (occurrence: US)
  Receive Date: 20200716
  Receipt Date: 20200716
  Transmission Date: 20201103
  Serious: Yes (Death)
  Sender: FDA-Public Use
  Company Number: None

PATIENT
  Sex: Female

DRUGS (14)
  1. TADALAFIL. [Suspect]
     Active Substance: TADALAFIL
     Indication: PULMONARY ARTERIAL HYPERTENSION
     Route: 048
     Dates: start: 20190426
  2. LIOTHRONNIE [Concomitant]
  3. GLIMEPIRIDE. [Concomitant]
     Active Substance: GLIMEPIRIDE
  4. IPRATROPIUM SOL [Concomitant]
  5. PANTOPRAZOLE [Concomitant]
     Active Substance: PANTOPRAZOLE
  6. POT CHLORIDE [Concomitant]
     Active Substance: POTASSIUM CHLORIDE
  7. TYVASO [Concomitant]
     Active Substance: TREPROSTINIL
  8. HYDROCOD/APAP [Concomitant]
  9. METOLAZONE. [Concomitant]
     Active Substance: METOLAZONE
  10. PREDNISONE. [Concomitant]
     Active Substance: PREDNISONE
  11. GABAPENTIN. [Concomitant]
     Active Substance: GABAPENTIN
  12. LEVOTHYROXIN [Concomitant]
     Active Substance: LEVOTHYROXINE
  13. ONE TOUCH TES VERIO [Concomitant]
  14. TORSEMIDE. [Concomitant]
     Active Substance: TORSEMIDE

REACTIONS (1)
  - Death [None]
